FAERS Safety Report 20997403 (Version 1)
Quarter: 2022Q2

REPORT INFORMATION
  Report Type: Spontaneous
  Country: US (occurrence: None)
  Receive Date: 20220622
  Receipt Date: 20220622
  Transmission Date: 20220721
  Serious: Yes (Death)
  Sender: FDA-Public Use
  Company Number: None

PATIENT
  Age: 71 Year
  Sex: Male
  Weight: 54.6 kg

DRUGS (1)
  1. YESCARTA [Suspect]
     Active Substance: AXICABTAGENE CILOLEUCEL
     Indication: Diffuse large B-cell lymphoma
     Dosage: FREQUENCY : ONCE;?
     Route: 042

REACTIONS (15)
  - Immune effector cell-associated neurotoxicity syndrome [None]
  - Febrile neutropenia [None]
  - Respiratory failure [None]
  - Neurotoxicity [None]
  - Cardiac failure [None]
  - Cytomegalovirus viraemia [None]
  - Cytopenia [None]
  - Cerebral haemorrhage [None]
  - Dysphagia [None]
  - Pneumonia aspiration [None]
  - Disease progression [None]
  - Hypothermia [None]
  - Hypotension [None]
  - Sepsis [None]
  - Cytokine release syndrome [None]

NARRATIVE: CASE EVENT DATE: 20220527
